FAERS Safety Report 10847229 (Version 2)
Quarter: 2015Q1

REPORT INFORMATION
  Report Type: Other
  Country: US (occurrence: US)
  Receive Date: 20150220
  Receipt Date: 20150302
  Transmission Date: 20150721
  Serious: Yes (Death, Other)
  Sender: FDA-Public Use
  Company Number: US-UNITED THERAPEUTICS-UNT-2015-001766

PATIENT
  Sex: Female
  Weight: 53.51 kg

DRUGS (2)
  1. REMODULIN [Suspect]
     Active Substance: TREPROSTINIL
     Indication: PULMONARY ARTERIAL HYPERTENSION
     Dosage: .030 ?G/KG, CONTINUING
     Route: 058
     Dates: start: 20140821
  2. REVATIO [Concomitant]
     Active Substance: SILDENAFIL CITRATE
     Indication: PRODUCT USED FOR UNKNOWN INDICATION

REACTIONS (3)
  - Cardiopulmonary failure [Fatal]
  - Cardiac arrest [Unknown]
  - Death [Fatal]
